FAERS Safety Report 8192672-3 (Version None)
Quarter: 2012Q1

REPORT INFORMATION
  Report Type: 
  Country: None (occurrence: None)
  Receive Date: 20120308
  Receipt Date: 20120227
  Transmission Date: 20120608
  Serious: Yes (Other)
  Sender: FDA-Public Use
  Company Number: US-JNJFOC-20111110502

PATIENT
  Sex: Female

DRUGS (4)
  1. PHENOTHIAZINE [Suspect]
     Indication: PAIN
     Route: 065
  2. RISPERDAL CONSTA [Suspect]
     Indication: PRODUCT USED FOR UNKNOWN INDICATION
     Route: 030
     Dates: start: 20100301
  3. RISPERDAL [Suspect]
     Indication: PRODUCT USED FOR UNKNOWN INDICATION
     Route: 065
  4. RISPERDAL CONSTA [Suspect]
     Route: 030
     Dates: start: 20061101, end: 20100301

REACTIONS (8)
  - PRODUCT QUALITY ISSUE [None]
  - FEELING ABNORMAL [None]
  - TARDIVE DYSKINESIA [None]
  - ASTHENIA [None]
  - CONSTIPATION [None]
  - DEMENTIA [None]
  - DRUG DOSE OMISSION [None]
  - DIZZINESS [None]
